FAERS Safety Report 5422301-0 (Version None)
Quarter: 2007Q3

REPORT INFORMATION
  Report Type: 
  Country: None (occurrence: None)
  Receive Date: 20070817
  Receipt Date: 20070806
  Transmission Date: 20080115
  Serious: Yes (Death, Other)
  Sender: FDA-Public Use
  Company Number: 2007JP003734

PATIENT
  Sex: Female

DRUGS (1)
  1. FUNGUARD(MICAFUNGIN) INJECTION [Suspect]
     Indication: CANDIDIASIS
     Dosage: 100 MG/D, IV DRIP
     Route: 041

REACTIONS (1)
  - PNEUMONIA [None]
